FAERS Safety Report 9187776 (Version 1)
Quarter: 2013Q1

REPORT INFORMATION
  Report Type: Spontaneous
  Country: US (occurrence: US)
  Receive Date: 20130325
  Receipt Date: 20130325
  Transmission Date: 20140127
  Serious: No
  Sender: FDA-Public Use
  Company Number: US-MYLANLABS-2012S1007804

PATIENT
  Age: 51 Year
  Sex: Female

DRUGS (10)
  1. FENTANYL TRANSDERMAL SYSTEM [Suspect]
     Indication: HEADACHE
     Dosage: Q. 72 HOURS
     Route: 062
     Dates: start: 201204
  2. FENTANYL TRANSDERMAL SYSTEM [Suspect]
     Indication: ABDOMINAL PAIN UPPER
     Dosage: Q. 72 HOURS
     Route: 062
     Dates: start: 201204
  3. FENTANYL TRANSDERMAL SYSTEM [Suspect]
     Indication: HEADACHE
     Dosage: Q. 72 HOURS
     Route: 062
     Dates: start: 201204
  4. FENTANYL TRANSDERMAL SYSTEM [Suspect]
     Indication: ABDOMINAL PAIN UPPER
     Dosage: Q. 72 HOURS
     Route: 062
     Dates: start: 201204
  5. PRILOSEC [Concomitant]
  6. BACLOFEN [Concomitant]
  7. DIAZEPAM [Concomitant]
  8. GABAPENTIN [Concomitant]
  9. TOPAMAX [Concomitant]
  10. HYDROCODONE [Concomitant]

REACTIONS (5)
  - Drug effect increased [Recovered/Resolved]
  - Lethargy [Recovered/Resolved]
  - Somnolence [Recovered/Resolved]
  - Insomnia [Recovered/Resolved]
  - Speech disorder [Recovered/Resolved]
